FAERS Safety Report 8143022-X (Version None)
Quarter: 2012Q1

REPORT INFORMATION
  Report Type: 
  Country: None (occurrence: None)
  Receive Date: 20120217
  Receipt Date: 20120208
  Transmission Date: 20120608
  Serious: No
  Sender: FDA-Public Use
  Company Number: US-BIOGENIDEC-2012BI005286

PATIENT
  Age: 34 Year
  Sex: Female

DRUGS (2)
  1. TOPAMAX [Concomitant]
     Indication: MIGRAINE
  2. TYSABRI [Suspect]
     Indication: MULTIPLE SCLEROSIS
     Route: 042
     Dates: start: 20110225

REACTIONS (4)
  - FATIGUE [None]
  - EYE PAIN [None]
  - MIGRAINE [None]
  - OPTIC NEURITIS [None]
